FAERS Safety Report 9668871 (Version 1)
Quarter: 2013Q4

REPORT INFORMATION
  Report Type: Spontaneous
  Country: IT (occurrence: IT)
  Receive Date: 20131105
  Receipt Date: 20131105
  Transmission Date: 20140711
  Serious: Yes (Hospitalization)
  Sender: FDA-Public Use
  Company Number: PHHY2013IT123171

PATIENT
  Age: 64 Year
  Sex: Female

DRUGS (6)
  1. ZOLEDRONATE [Suspect]
     Indication: BREAST CANCER
     Dosage: 1 OT, QMO
     Route: 042
     Dates: start: 20110629, end: 20130601
  2. AFINITOR [Concomitant]
  3. AROMASIN [Concomitant]
  4. VINORELBINE [Concomitant]
     Dates: start: 20110601, end: 20130401
  5. CAPECITABINE [Concomitant]
  6. PACLITAXEL [Concomitant]

REACTIONS (2)
  - Osteitis [Not Recovered/Not Resolved]
  - Osteonecrosis of jaw [Not Recovered/Not Resolved]
